FAERS Safety Report 4568876-5 (Version None)
Quarter: 2005Q1

REPORT INFORMATION
  Report Type: 
  Country: None (occurrence: None)
  Receive Date: 20050113
  Receipt Date: 20050113
  Transmission Date: 20050727
  Serious: Yes (Other)
  Sender: FDA-Public Use
  Company Number: None

PATIENT
  Sex: Male

DRUGS (2)
  1. DILANTIN [Suspect]
     Indication: EPILEPSY
     Dosage: 4 PO QD
     Route: 048
     Dates: start: 19920101
  2. DILANTIN [Suspect]
     Indication: SIMPLE PARTIAL SEIZURES
     Dosage: 4 PO QD
     Route: 048
     Dates: start: 19920101

REACTIONS (3)
  - CONVULSION [None]
  - DRUG LEVEL FLUCTUATING [None]
  - PHARMACEUTICAL PRODUCT COMPLAINT [None]
